FAERS Safety Report 6518799-7 (Version None)
Quarter: 2009Q4

REPORT INFORMATION
  Report Type: 
  Country: None (occurrence: None)
  Receive Date: 20091218
  Receipt Date: 20091214
  Transmission Date: 20100525
  Serious: Yes (Other)
  Sender: FDA-Public Use
  Company Number: A0835080A

PATIENT
  Sex: Female

DRUGS (1)
  1. CALCIUM CARBONATE [Suspect]
     Dosage: ORAL
     Route: 048

REACTIONS (1)
  - NEPHROLITHIASIS [None]
